FAERS Safety Report 9689716 (Version 2)
Quarter: 2013Q4

REPORT INFORMATION
  Report Type: Report from Study
  Country: BE (occurrence: BE)
  Receive Date: 20131115
  Receipt Date: 20131129
  Transmission Date: 20140711
  Serious: Yes (Hospitalization)
  Sender: FDA-Public Use
  Company Number: BE-AMGEN-BELCT2013080737

PATIENT
  Age: 59 Year
  Sex: Female

DRUGS (5)
  1. ETANERCEPT [Suspect]
     Indication: RHEUMATOID ARTHRITIS
     Dosage: 25 MG, 2 TIMES/WK
     Route: 058
     Dates: start: 20060424, end: 20061005
  2. LEDERTREXATE                       /00113801/ [Concomitant]
     Indication: RHEUMATOID ARTHRITIS
     Dosage: 4 MG, 1X/WK
     Route: 048
     Dates: start: 20040305, end: 20061006
  3. FOLIC ACID [Concomitant]
     Dosage: UNK
     Route: 048
     Dates: start: 20000204
  4. ARAVA [Concomitant]
     Dosage: UNK
     Route: 048
     Dates: start: 20050114
  5. PREDNISOLONE [Concomitant]
     Dosage: UNK
     Route: 048
     Dates: start: 20060113

REACTIONS (2)
  - Sepsis [Recovered/Resolved]
  - Post procedural infection [Recovered/Resolved]
